FAERS Safety Report 8402932-6 (Version None)
Quarter: 2012Q2

REPORT INFORMATION
  Report Type: 
  Country: None (occurrence: None)
  Receive Date: 20120601
  Receipt Date: 20120515
  Transmission Date: 20120825
  Serious: Yes (Hospitalization, Other)
  Sender: FDA-Public Use
  Company Number: US-GLAXOSMITHKLINE-A0978094A

PATIENT
  Age: 65 Year
  Sex: Female
  Weight: 93.1 kg

DRUGS (15)
  1. DEXAMETHASONE [Suspect]
     Indication: AMYLOIDOSIS
     Dosage: 20MG CYCLIC
     Route: 042
     Dates: start: 20120306, end: 20120406
  2. FRAGMIN [Concomitant]
  3. ATENOLOL [Concomitant]
  4. FUROSEMIDE [Concomitant]
  5. PROCHLORPERAZINE MALEATE [Concomitant]
  6. ACYCLOVIR [Concomitant]
  7. LORAZEPAM [Concomitant]
  8. AMIODARONE HCL [Concomitant]
  9. METHIMAZOLE [Concomitant]
  10. MELPHALAN HYDROCHLORIDE [Suspect]
     Indication: AMYLOIDOSIS
     Dosage: 70MGM2 CYCLIC
     Route: 042
     Dates: start: 20120501, end: 20120502
  11. BORTEZOMIB [Suspect]
     Indication: AMYLOIDOSIS
     Dosage: 1.3MGM2 CYCLIC
     Route: 042
     Dates: start: 20120427, end: 20120507
  12. FLUCONAZOLE [Concomitant]
  13. PROTONIX [Concomitant]
  14. LEVAQUIN [Concomitant]
  15. POTASSIUM CHLORIDE [Concomitant]

REACTIONS (4)
  - ASTHENIA [None]
  - VOMITING [None]
  - NAUSEA [None]
  - PANCYTOPENIA [None]
